FAERS Safety Report 6075638-9 (Version None)
Quarter: 2009Q1

REPORT INFORMATION
  Report Type: 
  Country: None (occurrence: None)
  Receive Date: 20090209
  Receipt Date: 20090203
  Transmission Date: 20090719
  Serious: Yes (Death)
  Sender: FDA-Public Use
  Company Number: 2009SP002501

PATIENT
  Age: 60 Year
  Sex: Male

DRUGS (2)
  1. TEMODAL [Suspect]
     Indication: GLIOBLASTOMA MULTIFORME
     Dosage: 75 MG/M2 QD; PO
     Route: 048
     Dates: start: 20090101, end: 20090101
  2. TEMODAL [Suspect]
     Indication: GLIOBLASTOMA MULTIFORME
     Dosage: 75 MG/M2 QD; PO
     Route: 048
     Dates: start: 20081201

REACTIONS (1)
  - INTERSTITIAL LUNG DISEASE [None]
